FAERS Safety Report 14484617 (Version 1)
Quarter: 2018Q1

REPORT INFORMATION
  Report Type: Spontaneous
  Country: US (occurrence: US)
  Receive Date: 20180202
  Receipt Date: 20180202
  Transmission Date: 20180509
  Serious: No
  Sender: FDA-Public Use
  Company Number: None

PATIENT
  Age: 44 Year
  Sex: Male

DRUGS (1)
  1. H.P. ACTHAR [Suspect]
     Active Substance: CORTICOTROPIN
     Indication: RHEUMATOID ARTHRITIS
     Route: 058
     Dates: start: 20161021, end: 20180202

REACTIONS (4)
  - Insomnia [None]
  - Arthralgia [None]
  - Eye swelling [None]
  - Vision blurred [None]

NARRATIVE: CASE EVENT DATE: 20180202
